FAERS Safety Report 6821502-4 (Version None)
Quarter: 2010Q3

REPORT INFORMATION
  Report Type: 
  Country: None (occurrence: None)
  Receive Date: 20100707
  Receipt Date: 20100622
  Transmission Date: 20110219
  Serious: Yes (Other)
  Sender: FDA-Public Use
  Company Number: JP-ROCHE-655596

PATIENT
  Sex: Female

DRUGS (4)
  1. PEGINTERFERON ALFA-2A [Suspect]
     Indication: HEPATITIS C
     Route: 058
     Dates: start: 20090813, end: 20090820
  2. PEGINTERFERON ALFA-2A [Suspect]
     Route: 058
     Dates: start: 20090910, end: 20100218
  3. COPEGUS [Suspect]
     Indication: HEPATITIS C
     Dosage: NOTE: 200 MG, 400 MG
     Route: 048
     Dates: start: 20090813, end: 20090825
  4. COPEGUS [Suspect]
     Dosage: NOTE: 200 MG, 400 MG
     Route: 048
     Dates: start: 20090910, end: 20100215

REACTIONS (2)
  - ABORTION MISSED [None]
  - PREGNANCY [None]
